FAERS Safety Report 9116980 (Version 1)
Quarter: 2013Q1

REPORT INFORMATION
  Report Type: Spontaneous
  Country: US (occurrence: US)
  Receive Date: 20130225
  Receipt Date: 20130225
  Transmission Date: 20140127
  Serious: No
  Sender: FDA-Public Use
  Company Number: US-PFIZER INC-2013065175

PATIENT
  Age: 68 Year
  Sex: Male

DRUGS (10)
  1. INLYTA [Suspect]
     Indication: RENAL CANCER
     Dosage: 5 MG, UNK
     Dates: start: 20130204
  2. AFINITOR [Concomitant]
     Dosage: UNK
  3. ALPRAZOLAM [Concomitant]
     Dosage: UNK
  4. POLYETHYLENE GLYCOL [Concomitant]
     Dosage: UNK
  5. CARAFATE [Concomitant]
     Dosage: UNK
  6. PRILOSEC [Concomitant]
     Dosage: UNK
  7. DULCOLAX [Concomitant]
     Indication: LAXATIVE SUPPORTIVE CARE
     Dosage: UNK
  8. SUTENT [Concomitant]
     Dosage: UNK
  9. HYDROCODONE/ACETAMINOPHEN [Concomitant]
     Dosage: UNK
  10. IMODIUM A-D [Concomitant]
     Dosage: UNK

REACTIONS (1)
  - Diarrhoea [Unknown]
